FAERS Safety Report 6771155-9 (Version None)
Quarter: 2010Q2

REPORT INFORMATION
  Report Type: 
  Country: None (occurrence: None)
  Receive Date: 20100614
  Receipt Date: 20100614
  Transmission Date: 20101027
  Serious: No
  Sender: FDA-Public Use
  Company Number: None

PATIENT
  Age: 49 Year
  Sex: Female
  Weight: 102.0593 kg

DRUGS (1)
  1. ADDERALL 10 [Suspect]
     Indication: ATTENTION DEFICIT/HYPERACTIVITY DISORDER
     Dosage: 20MG 1X DAILY PO
     Route: 048
     Dates: start: 20100421, end: 20100521

REACTIONS (3)
  - DRUG EFFECT DECREASED [None]
  - IRRITABILITY [None]
  - PRODUCT FORMULATION ISSUE [None]
